FAERS Safety Report 9674656 (Version 1)
Quarter: 2013Q4

REPORT INFORMATION
  Report Type: Spontaneous
  Country: KR (occurrence: KR)
  Receive Date: 20131107
  Receipt Date: 20131107
  Transmission Date: 20140711
  Serious: Yes (Hospitalization)
  Sender: FDA-Public Use
  Company Number: KR-PFIZER INC-2013314331

PATIENT
  Age: 47 Year
  Sex: Female

DRUGS (3)
  1. AMLODIPINE [Suspect]
     Dosage: UNK
  2. ISOSORBIDE DINITRATE [Suspect]
     Dosage: UNK
  3. NICORANDIL [Suspect]
     Dosage: UNK

REACTIONS (4)
  - Suicide attempt [Recovered/Resolved]
  - Overdose [Recovered/Resolved]
  - Hypotension [Recovered/Resolved]
  - Lethargy [Recovered/Resolved]
